FAERS Safety Report 20510464 (Version 1)
Quarter: 2022Q1

REPORT INFORMATION
  Report Type: Spontaneous
  Country: TR (occurrence: TR)
  Receive Date: 20220224
  Receipt Date: 20220224
  Transmission Date: 20220423
  Serious: Yes (Life-Threatening, Hospitalization, Other)
  Sender: FDA-Public Use
  Company Number: TR-PRA-001151

PATIENT
  Age: 68 Year
  Sex: Male

DRUGS (2)
  1. METHYLPREDNISOLONE [Suspect]
     Active Substance: METHYLPREDNISOLONE
     Indication: Toxic epidermal necrolysis
     Dosage: FOR 5 DAYS
     Route: 042
  2. METHYLPREDNISOLONE [Suspect]
     Active Substance: METHYLPREDNISOLONE
     Indication: Toxic epidermal necrolysis
     Dosage: AFTER THE FIFTH DAY
     Route: 042

REACTIONS (6)
  - Sepsis [Unknown]
  - Respiratory tract infection [Unknown]
  - Product use in unapproved indication [Unknown]
  - Toxic epidermal necrolysis [Unknown]
  - Disease progression [Unknown]
  - Bacterial infection [Unknown]
